FAERS Safety Report 7207859-3 (Version None)
Quarter: 2010Q4

REPORT INFORMATION
  Report Type: 
  Country: None (occurrence: None)
  Receive Date: 20101221
  Receipt Date: 20101216
  Transmission Date: 20110411
  Serious: Yes (Other)
  Sender: FDA-Public Use
  Company Number: 2010CP000092

PATIENT
  Age: 77 Year
  Sex: Female

DRUGS (9)
  1. PERFALGAN (PARACETAMOL) [Suspect]
     Indication: ABDOMINAL PAIN
     Dosage: 1 DOSAGE FORM; 1 DAY; IV
     Route: 042
     Dates: start: 20100111
  2. SPASFON (NO PREF. NAME) [Suspect]
     Indication: ABDOMINAL PAIN
     Dosage: 1 DAY;IV
     Route: 042
     Dates: start: 20100111
  3. FLUINDIONE [Concomitant]
  4. NEBIVOLOL HCL [Concomitant]
  5. INDAPAMIDE [Concomitant]
  6. ZALDIAR [Concomitant]
  7. ZOPICLONE [Concomitant]
  8. SERTRALINE HYDROCHLORIDE [Concomitant]
  9. TRIMEBUTINE [Concomitant]

REACTIONS (3)
  - ANAPHYLACTIC REACTION [None]
  - ANGIOEDEMA [None]
  - INFUSION RELATED REACTION [None]
